FAERS Safety Report 23271911 (Version 1)
Quarter: 2023Q4

REPORT INFORMATION
  Report Type: Spontaneous
  Country: US (occurrence: US)
  Receive Date: 20231207
  Receipt Date: 20231207
  Transmission Date: 20240110
  Serious: No
  Sender: FDA-Public Use
  Company Number: US-SA-SAC20231205000076

PATIENT
  Sex: Female

DRUGS (1)
  1. DUPIXENT [Suspect]
     Active Substance: DUPILUMAB
     Indication: Nasal polyps
     Dosage: 300 MG, QOW
     Route: 058

REACTIONS (7)
  - Lacrimation increased [Unknown]
  - Eye pain [Unknown]
  - Asthenopia [Unknown]
  - Pain in extremity [Unknown]
  - Tenderness [Unknown]
  - Sensory disturbance [Unknown]
  - Eye pruritus [Unknown]
